FAERS Safety Report 22249390 (Version 1)
Quarter: 2023Q2

REPORT INFORMATION
  Report Type: Spontaneous
  Country: US (occurrence: None)
  Receive Date: 20230424
  Receipt Date: 20230424
  Transmission Date: 20230722
  Serious: Yes (Disabling)
  Sender: FDA-Public Use
  Company Number: None

PATIENT
  Age: 69 Year
  Sex: Male
  Weight: 63.9 kg

DRUGS (3)
  1. ACETAMINOPHEN\CODEINE PHOSPHATE [Suspect]
     Active Substance: ACETAMINOPHEN\CODEINE PHOSPHATE
     Indication: Pain
     Dosage: OTHER QUANTITY : 1 TABLET(S);?FREQUENCY : 3 TIMES A DAY;?
     Route: 048
     Dates: start: 20230417
  2. ACETAMINOPHEN\CODEINE PHOSPHATE [Concomitant]
     Active Substance: ACETAMINOPHEN\CODEINE PHOSPHATE
  3. VITAMINS [Concomitant]
     Active Substance: VITAMINS

REACTIONS (10)
  - Dyspnoea [None]
  - Chest discomfort [None]
  - Throat tightness [None]
  - Constipation [None]
  - Mobility decreased [None]
  - Asthenia [None]
  - Insomnia [None]
  - Chest pain [None]
  - Suffocation feeling [None]
  - Vision blurred [None]

NARRATIVE: CASE EVENT DATE: 20230417
